FAERS Safety Report 5191462-3 (Version None)
Quarter: 2006Q4

REPORT INFORMATION
  Report Type: 
  Country: None (occurrence: None)
  Receive Date: 20061219
  Receipt Date: 20061219
  Transmission Date: 20070319
  Serious: Yes (Life-Threatening, Hospitalization)
  Sender: FDA-Public Use
  Company Number: None

PATIENT
  Sex: Female
  Weight: 72.5755 kg

DRUGS (1)
  1. LEVOXYL [Suspect]
     Indication: THYROID DISORDER
     Dosage: 1 IN MORNING MOUTH
     Route: 048
     Dates: start: 20020901, end: 20030201

REACTIONS (3)
  - ANXIETY [None]
  - PALPITATIONS [None]
  - PANIC ATTACK [None]
